FAERS Safety Report 16003256 (Version 6)
Quarter: 2020Q1

REPORT INFORMATION
  Report Type: Report from Study
  Country: None (occurrence: US)
  Receive Date: 20190225
  Receipt Date: 20200214
  Transmission Date: 20200409
  Serious: Yes (Hospitalization, Other)
  Sender: FDA-Public Use
  Company Number: US-ABBVIE-19K-163-2676223-00

PATIENT
  Sex: Female

DRUGS (2)
  1. HUMIRA [Suspect]
     Active Substance: ADALIMUMAB
     Indication: PSORIASIS
     Dosage: CITRATE FREE
     Route: 058
  2. MIDODRINE [Concomitant]
     Active Substance: MIDODRINE
     Indication: PRODUCT USED FOR UNKNOWN INDICATION

REACTIONS (14)
  - Eye swelling [Unknown]
  - Blister [Unknown]
  - Blindness [Unknown]
  - Upper respiratory tract infection [Unknown]
  - Pulmonary thrombosis [Unknown]
  - Cardiac failure congestive [Unknown]
  - Visual impairment [Unknown]
  - Influenza [Recovering/Resolving]
  - Weight decreased [Unknown]
  - Sinus disorder [Unknown]
  - Anaemia [Unknown]
  - Psoriasis [Unknown]
  - Periorbital swelling [Unknown]
  - Bacterial infection [Unknown]

NARRATIVE: CASE EVENT DATE: 2019
